FAERS Safety Report 7032730-X (Version None)
Quarter: 2010Q4

REPORT INFORMATION
  Report Type: 
  Country: None (occurrence: None)
  Receive Date: 20101007
  Receipt Date: 20100928
  Transmission Date: 20110411
  Serious: Yes (Death)
  Sender: FDA-Public Use
  Company Number: US-BAXTER-2010BH024603

PATIENT
  Age: 69 Year
  Sex: Male

DRUGS (1)
  1. DIANEAL [Suspect]
     Indication: PERITONEAL DIALYSIS
     Route: 033
     Dates: start: 20070301, end: 20100923

REACTIONS (4)
  - CARDIAC DISORDER [None]
  - CARDIAC FAILURE [None]
  - LUNG NEOPLASM MALIGNANT [None]
  - OBSTRUCTIVE AIRWAYS DISORDER [None]
